FAERS Safety Report 7547893 (Version 5)
Quarter: 2013Q3

REPORT INFORMATION
  Report Type: Spontaneous
  Country: US (occurrence: US)
  Receive Date: 20100820
  Receipt Date: 20130925
  Transmission Date: 20140515
  Serious: Yes (Hospitalization, Other)
  Sender: FDA-Public Use
  Company Number: US-JNJFOC-20100805173

PATIENT
  Sex: Male

DRUGS (5)
  1. LEVAQUIN [Suspect]
     Indication: UPPER RESPIRATORY TRACT INFECTION
     Route: 048
     Dates: start: 20040928, end: 20090330
  2. LEVAQUIN [Suspect]
     Indication: BRONCHITIS
     Route: 048
     Dates: start: 20040928, end: 20090330
  3. LEVAQUIN [Suspect]
     Indication: ASTHMA
     Route: 048
     Dates: start: 20040928, end: 20090330
  4. LEVAQUIN [Suspect]
     Indication: BRONCHITIS
     Route: 048
     Dates: start: 20040928, end: 20090330
  5. LEVAQUIN [Suspect]
     Indication: SINUSITIS
     Route: 048
     Dates: start: 20040928, end: 20090330

REACTIONS (6)
  - Rotator cuff syndrome [Unknown]
  - Tendon rupture [Recovering/Resolving]
  - Rotator cuff syndrome [Unknown]
  - Musculoskeletal pain [Unknown]
  - Tendonitis [Unknown]
  - Tenosynovitis [Unknown]
